FAERS Safety Report 8995059 (Version 1)
Quarter: 2013Q1

REPORT INFORMATION
  Report Type: Spontaneous
  Country: US (occurrence: US)
  Receive Date: 20130102
  Receipt Date: 20130102
  Transmission Date: 20140127
  Serious: Yes (Life-Threatening, Hospitalization, Other)
  Sender: FDA-Public Use
  Company Number: US-B.I. PHARMACEUTICALS,INC./RIDGEFIELD-2012-BI-04437GD

PATIENT
  Age: 81 Year
  Sex: Female

DRUGS (2)
  1. DABIGATRAN ETEXILATE [Suspect]
  2. DABIGATRAN ETEXILATE [Suspect]
     Dosage: 150 MG

REACTIONS (5)
  - Post procedural haematoma [Unknown]
  - Post procedural swelling [Unknown]
  - Postoperative wound complication [Unknown]
  - Haemoglobin decreased [Unknown]
  - Renal function test abnormal [Unknown]
